FAERS Safety Report 8532736-5 (Version None)
Quarter: 2012Q3

REPORT INFORMATION
  Report Type: 
  Country: None (occurrence: None)
  Receive Date: 20120724
  Receipt Date: 20120717
  Transmission Date: 20120928
  Serious: Yes (Other)
  Sender: FDA-Public Use
  Company Number: PHHY2011CA25417

PATIENT
  Sex: Male

DRUGS (1)
  1. SANDOSTATIN LAR [Suspect]
     Indication: ACROMEGALY
     Dosage: 30 MG, EVERY 3 WEEKS
     Route: 030
     Dates: start: 19980104

REACTIONS (6)
  - PALPITATIONS [None]
  - ANXIETY [None]
  - MENISCUS LESION [None]
  - ARTHRITIS [None]
  - PAIN [None]
  - WEIGHT DECREASED [None]
